FAERS Safety Report 22703725 (Version 2)
Quarter: 2025Q1

REPORT INFORMATION
  Report Type: Spontaneous
  Country: US (occurrence: US)
  Receive Date: 20230714
  Receipt Date: 20250318
  Transmission Date: 20250409
  Serious: No
  Sender: SANOFI AVENTIS
  Company Number: US-SA-SAC20230712001432

PATIENT
  Sex: Female
  Weight: 53.45 kg

DRUGS (1)
  1. DUPIXENT [Suspect]
     Active Substance: DUPILUMAB
     Indication: Asthma
     Dosage: 300 MG, QOW
     Route: 058

REACTIONS (6)
  - Dry mouth [Unknown]
  - Illness [Unknown]
  - Dyspnoea [Unknown]
  - Insomnia [Unknown]
  - Dry eye [Unknown]
  - Intentional product misuse [Unknown]
